FAERS Safety Report 25988847 (Version 1)
Quarter: 2025Q4

REPORT INFORMATION
  Report Type: Spontaneous
  Country: US (occurrence: US)
  Receive Date: 20251103
  Receipt Date: 20251103
  Transmission Date: 20260118
  Serious: No
  Sender: Kenvue
  Company Number: US-KENVUE-20251005730

PATIENT
  Sex: Female

DRUGS (1)
  1. TYLENOL 8HR [Suspect]
     Active Substance: ACETAMINOPHEN
     Indication: Arthralgia
     Dosage: 2 CAPLETS THREE TIMES A DAY, HAVE BEEN TAKING FOR TWO YEARS.
     Route: 065
     Dates: start: 2023

REACTIONS (1)
  - Arthralgia [Not Recovered/Not Resolved]
